FAERS Safety Report 11269782 (Version 1)
Quarter: 2015Q3

REPORT INFORMATION
  Report Type: Spontaneous
  Country: US (occurrence: None)
  Receive Date: 20150713
  Receipt Date: 20150713
  Transmission Date: 20151125
  Serious: Yes (Life-Threatening, Hospitalization)
  Sender: FDA-Public Use
  Company Number: None

PATIENT
  Age: 68 Year
  Sex: Male
  Weight: 87.09 kg

DRUGS (8)
  1. SIMVASTATIN. [Concomitant]
     Active Substance: SIMVASTATIN
  2. GENERIC CLINDAMYCIN - 300 MG [Suspect]
     Active Substance: CLINDAMYCIN\CLINDAMYCIN PHOSPHATE
     Indication: INFECTION PROPHYLAXIS
     Route: 048
     Dates: start: 20150521
  3. BENAZEPRIL [Concomitant]
     Active Substance: BENAZEPRIL HYDROCHLORIDE
  4. AXIRON [Concomitant]
     Active Substance: TESTOSTERONE
  5. TESTOSTERONE. [Concomitant]
     Active Substance: TESTOSTERONE
  6. COLACE [Concomitant]
     Active Substance: DOCUSATE SODIUM
  7. GENERIC CLINDAMYCIN - 300 MG [Suspect]
     Active Substance: CLINDAMYCIN\CLINDAMYCIN PHOSPHATE
     Indication: TOOTH EXTRACTION
     Route: 048
     Dates: start: 20150521
  8. VITAMIN C [Concomitant]
     Active Substance: ASCORBIC ACID

REACTIONS (3)
  - Hypersensitivity [None]
  - Stevens-Johnson syndrome [None]
  - Multi-organ disorder [None]

NARRATIVE: CASE EVENT DATE: 20150531
